FAERS Safety Report 4698099-0 (Version None)
Quarter: 2005Q2

REPORT INFORMATION
  Report Type: 
  Country: None (occurrence: None)
  Receive Date: 20050622
  Receipt Date: 20050622
  Transmission Date: 20051028
  Serious: Yes (Disabling)
  Sender: FDA-Public Use
  Company Number: None

PATIENT
  Age: 68 Year
  Sex: Female
  Weight: 71.6683 kg

DRUGS (7)
  1. CELEBREX [Suspect]
     Indication: OSTEOARTHRITIS
     Dosage: 200 MG   1 A DAY   BUCCAL
     Route: 002
     Dates: start: 19990804, end: 20020201
  2. CELEBREX [Suspect]
     Indication: PAIN
     Dosage: 200 MG   1 A DAY   BUCCAL
     Route: 002
     Dates: start: 19990804, end: 20020201
  3. KERLONE [Concomitant]
  4. LIPITOR [Concomitant]
  5. PROTONIX [Concomitant]
  6. ASPIRIN [Concomitant]
  7. TYLENOL SINUS ALLERGY [Concomitant]

REACTIONS (2)
  - HAEMORRHAGIC STROKE [None]
  - ISCHAEMIC STROKE [None]
